FAERS Safety Report 9028674 (Version 2)
Quarter: 2013Q1

REPORT INFORMATION
  Report Type: Report from Study
  Country: CA (occurrence: CA)
  Receive Date: 20130124
  Receipt Date: 20130228
  Transmission Date: 20140127
  Serious: Yes (Death, Other)
  Sender: FDA-Public Use
  Company Number: PHHY2013CA006356

PATIENT
  Sex: Male

DRUGS (4)
  1. CLOZARIL [Suspect]
     Indication: SCHIZOPHRENIA
     Dosage: UNK
     Dates: start: 20120525
  2. CLOZARIL [Suspect]
     Dosage: 350 MG, DAILY
     Route: 048
  3. CLOPIXOL DEPOT [Concomitant]
     Dosage: 100 MG, EVERY 21 DAYS
     Route: 030
  4. CLOPIXOL                           /00876701/ [Concomitant]
     Dosage: 10 MG

REACTIONS (7)
  - Septic shock [Fatal]
  - Blood pressure decreased [Fatal]
  - Sepsis [Unknown]
  - Gastric volvulus [Fatal]
  - Colitis ischaemic [Fatal]
  - Multi-organ failure [Fatal]
  - Peritonitis [Unknown]
